FAERS Safety Report 8541347 (Version 4)
Quarter: 2012Q4

REPORT INFORMATION
  Report Type: 
  Country: JP (occurrence: JP)
  Receive Date: 20120502
  Receipt Date: 20121213
  Transmission Date: 20130627
  Serious: Yes (Hospitalization)
  Sender: FDA-Public Use
  Company Number: JP-GLAXOSMITHKLINE-B0798868A

PATIENT
  Age: 48 Year
  Sex: Male
  Weight: 118 kg

DRUGS (18)
  1. LAMICTAL [Suspect]
     Indication: DEPRESSION
     Dosage: 25MG Per day
     Route: 048
     Dates: start: 20120119, end: 20120201
  2. LAMICTAL [Suspect]
     Indication: DEPRESSION
     Dosage: 25MG Per day
     Route: 048
     Dates: start: 20120202, end: 20120226
  3. MICAMLO [Concomitant]
     Route: 048
  4. EPADEL [Concomitant]
     Route: 048
  5. DOXAZOSIN MESILATE [Concomitant]
     Route: 048
  6. ALLOPURINOL [Concomitant]
     Route: 048
  7. LIPITOR [Concomitant]
     Route: 048
  8. SEIBULE [Concomitant]
     Route: 048
  9. METGLUCO [Concomitant]
     Route: 048
  10. NOVORAPID [Concomitant]
     Route: 058
  11. LEVEMIR [Concomitant]
     Route: 058
  12. LIMAS [Concomitant]
     Route: 048
  13. VALERIN [Concomitant]
     Indication: DEPRESSION
     Route: 048
     Dates: start: 201108
  14. CYMBALTA [Concomitant]
     Route: 048
  15. DEPAKENE-R [Concomitant]
     Indication: DEPRESSION
     Route: 048
     Dates: start: 201108
  16. TETRAMIDE [Concomitant]
     Route: 048
  17. ROZEREM [Concomitant]
     Route: 048
  18. MEIACT [Concomitant]
     Route: 048
     Dates: start: 20120224

REACTIONS (15)
  - Drug reaction with eosinophilia and systemic symptoms [Recovering/Resolving]
  - Drug eruption [Recovering/Resolving]
  - Pyrexia [Unknown]
  - C-reactive protein increased [Unknown]
  - White blood cell count increased [Unknown]
  - Rash generalised [Unknown]
  - Hyperthermia [Unknown]
  - Rash [Recovering/Resolving]
  - Pharyngeal erythema [Unknown]
  - Generalised erythema [Unknown]
  - Erythema [Unknown]
  - Lymphocytic infiltration [Unknown]
  - Papule [Unknown]
  - Erythema [Unknown]
  - Skin lesion [Unknown]
